FAERS Safety Report 6342161-3 (Version None)
Quarter: 2009Q3

REPORT INFORMATION
  Report Type: 
  Country: None (occurrence: None)
  Receive Date: 20090904
  Receipt Date: 20090904
  Transmission Date: 20100115
  Serious: Yes (Death, Life-Threatening, Hospitalization)
  Sender: FDA-Public Use
  Company Number: None

PATIENT
  Sex: Female
  Weight: 9.6 kg

DRUGS (15)
  1. BORTEZOMIB [Suspect]
     Indication: ACUTE LYMPHOCYTIC LEUKAEMIA RECURRENT
     Dosage: 1.3MG/M2/DAY DAYS 1, 4, 8, AND 11 IV
     Route: 042
     Dates: start: 20090721, end: 20090801
  2. PANTOPRAZOLE SODIUM [Concomitant]
  3. KYTRIL [Concomitant]
  4. IMIPENEM AND CILASTATIN SODIUM [Concomitant]
  5. MICAFUNGIN [Concomitant]
  6. GANCICLOVIR [Concomitant]
  7. ENALAPRIL MALEATE [Concomitant]
  8. LABELATOL [Concomitant]
  9. MORPHINE [Concomitant]
  10. PENTAMIDINE ISETHIONATE [Concomitant]
  11. BENADRYL [Concomitant]
  12. VINCRISTINE [Concomitant]
  13. PEG-ASPARAGINASE [Concomitant]
  14. DOXORUBICIN HCL [Concomitant]
  15. DECADRON [Concomitant]

REACTIONS (13)
  - BACTERIAL INFECTION [None]
  - BLOOD DISORDER [None]
  - BLOOD PRESSURE FLUCTUATION [None]
  - CARDIAC ARREST [None]
  - CHILLS [None]
  - HYPERTENSION [None]
  - HYPOTENSION [None]
  - HYPOTHERMIA [None]
  - INAPPROPRIATE ANTIDIURETIC HORMONE SECRETION [None]
  - INFECTION [None]
  - LETHARGY [None]
  - PYREXIA [None]
  - STENOTROPHOMONAS INFECTION [None]
